FAERS Safety Report 9846839 (Version 4)
Quarter: 2014Q3

REPORT INFORMATION
  Report Type: Spontaneous
  Country: US (occurrence: US)
  Receive Date: 20140127
  Receipt Date: 20140918
  Transmission Date: 20150326
  Serious: Yes (Death, Hospitalization)
  Sender: FDA-Public Use
  Company Number: US-JNJFOC-20140115013

PATIENT
  Age: 73 Year
  Sex: Male

DRUGS (3)
  1. HEPARIN [Suspect]
     Active Substance: HEPARIN SODIUM
     Indication: DEEP VEIN THROMBOSIS
  2. IMBRUVICA [Suspect]
     Active Substance: IBRUTINIB
     Indication: MANTLE CELL LYMPHOMA
     Route: 048
     Dates: start: 20131212, end: 20140108
  3. TOCOPHEROL [Concomitant]
     Active Substance: TOCOPHEROL

REACTIONS (6)
  - Cardio-respiratory arrest [None]
  - Subdural haematoma [Fatal]
  - Disseminated intravascular coagulation [None]
  - Mantle cell lymphoma [None]
  - Disease progression [Not Recovered/Not Resolved]
  - Weight decreased [Not Recovered/Not Resolved]

NARRATIVE: CASE EVENT DATE: 201312
